FAERS Safety Report 23751421 (Version 1)
Quarter: 2024Q2

REPORT INFORMATION
  Report Type: Spontaneous
  Country: JP (occurrence: JP)
  Receive Date: 20240417
  Receipt Date: 20240417
  Transmission Date: 20240716
  Serious: Yes (Life-Threatening, Hospitalization, Other)
  Sender: FDA-Public Use
  Company Number: JP-BBU-2024000012

PATIENT
  Age: 53 Year
  Sex: Male

DRUGS (1)
  1. TOCILIZUMAB [Suspect]
     Active Substance: TOCILIZUMAB
     Indication: Still^s disease

REACTIONS (3)
  - Panniculitis [Recovered/Resolved]
  - Toxic shock syndrome streptococcal [Recovered/Resolved]
  - Off label use [Unknown]
